FAERS Safety Report 20542917 (Version 1)
Quarter: 2022Q1

REPORT INFORMATION
  Report Type: Spontaneous
  Country: US (occurrence: US)
  Receive Date: 20220302
  Receipt Date: 20220302
  Transmission Date: 20220423
  Serious: No
  Sender: FDA-Public Use
  Company Number: US-PERRIGO-21US002152

PATIENT
  Age: 49 Year
  Sex: Female
  Weight: 70.295 kg

DRUGS (4)
  1. SCOPOLAMINE [Suspect]
     Active Substance: SCOPOLAMINE
     Indication: Nausea
     Dosage: 1 MG, OVER 3 DAYS
     Route: 062
     Dates: start: 201808
  2. SCOPOLAMINE [Suspect]
     Active Substance: SCOPOLAMINE
     Indication: Impaired gastric emptying
  3. ONDANSETRON [Concomitant]
     Active Substance: ONDANSETRON
     Indication: Nausea
     Dosage: 4 MG, QD, NIGHTLY
     Route: 065
     Dates: start: 201808
  4. ONDANSETRON [Concomitant]
     Active Substance: ONDANSETRON
     Indication: Motion sickness
     Dosage: 8 MG, PRN
     Route: 065
     Dates: start: 201808

REACTIONS (4)
  - Application site pruritus [Not Recovered/Not Resolved]
  - Application site erythema [Not Recovered/Not Resolved]
  - Off label use [Not Recovered/Not Resolved]
  - Wrong technique in product usage process [Not Recovered/Not Resolved]

NARRATIVE: CASE EVENT DATE: 20180801
